FAERS Safety Report 21056645 (Version 1)
Quarter: 2022Q3

REPORT INFORMATION
  Report Type: Spontaneous
  Country: US (occurrence: US)
  Receive Date: 20220708
  Receipt Date: 20220708
  Transmission Date: 20221026
  Serious: No
  Sender: FDA-Public Use
  Company Number: US-ALLERGAN-2215892US

PATIENT
  Sex: Female

DRUGS (1)
  1. QULIPTA [Suspect]
     Active Substance: ATOGEPANT
     Indication: Product used for unknown indication
     Dosage: ACTUAL:1 TABLET OF 30 MG AND A 30 MG SPLITTED IN HALF

REACTIONS (2)
  - Urticaria [Recovered/Resolved]
  - Wrong technique in product usage process [Unknown]
